FAERS Safety Report 14687532 (Version 1)
Quarter: 2018Q1

REPORT INFORMATION
  Report Type: Report from Study
  Country: US (occurrence: US)
  Receive Date: 20180328
  Receipt Date: 20180328
  Transmission Date: 20180509
  Serious: Yes (Hospitalization, Other)
  Sender: FDA-Public Use
  Company Number: US-ROCHE-2092212

PATIENT
  Age: 38 Year
  Sex: Female
  Weight: 104.42 kg

DRUGS (4)
  1. DETROL LA [Concomitant]
     Active Substance: TOLTERODINE TARTRATE
     Dosage: ONGOING:NO
     Route: 065
     Dates: start: 201710, end: 201802
  2. TROSPIUM [Suspect]
     Active Substance: TROSPIUM
     Indication: BLADDER DISORDER
     Dosage: ONGOING:NO
     Route: 065
     Dates: start: 20180215, end: 20180222
  3. OCREVUS [Suspect]
     Active Substance: OCRELIZUMAB
     Indication: MULTIPLE SCLEROSIS
     Dosage: ONGOING: YES
     Route: 065
     Dates: start: 20170517
  4. OCREVUS [Suspect]
     Active Substance: OCRELIZUMAB
     Dosage: ONGOING: YES
     Route: 065
     Dates: start: 20171212

REACTIONS (10)
  - Pneumonia [Recovered/Resolved]
  - Renal impairment [Recovered/Resolved]
  - Urinary tract infection [Recovered/Resolved]
  - Hemiparesis [Recovered/Resolved]
  - Micturition disorder [Recovered/Resolved]
  - Fall [Unknown]
  - Nephrolithiasis [Recovered/Resolved]
  - Multiple sclerosis relapse [Recovered/Resolved]
  - Asthenia [Not Recovered/Not Resolved]
  - Dehydration [Recovered/Resolved]

NARRATIVE: CASE EVENT DATE: 201710
